FAERS Safety Report 7285163-5 (Version None)
Quarter: 2011Q1

REPORT INFORMATION
  Report Type: 
  Country: None (occurrence: None)
  Receive Date: 20110210
  Receipt Date: 20110120
  Transmission Date: 20110831
  Serious: No
  Sender: FDA-Public Use
  Company Number: US-B.I. PHARMACEUTICALS,INC./RIDGEFIELD-2011-BP-02264BP

PATIENT

DRUGS (1)
  1. PRADAXA [Suspect]
     Route: 048

REACTIONS (14)
  - PAIN IN EXTREMITY [None]
  - MUSCLE SPASMS [None]
  - ARTHRALGIA [None]
  - LIP SWELLING [None]
  - INTERNATIONAL NORMALISED RATIO INCREASED [None]
  - EPISTAXIS [None]
  - BLOOD URINE PRESENT [None]
  - BLISTER [None]
  - HAEMATOCHEZIA [None]
  - EAR HAEMORRHAGE [None]
  - MOUTH HAEMORRHAGE [None]
  - CHEST PAIN [None]
  - GASTRIC DISORDER [None]
  - OEDEMA PERIPHERAL [None]
